FAERS Safety Report 8098225-X (Version None)
Quarter: 2012Q1

REPORT INFORMATION
  Report Type: 
  Country: None (occurrence: None)
  Receive Date: 20120128
  Receipt Date: 20110805
  Transmission Date: 20120608
  Serious: No
  Sender: FDA-Public Use
  Company Number: US-ABBOTT-11P-163-0844556-00

PATIENT
  Age: 65 Year
  Sex: Female

DRUGS (4)
  1. NEXIUM [Concomitant]
     Indication: GASTROOESOPHAGEAL REFLUX DISEASE
     Dosage: DAILY
     Route: 048
  2. NORVASC [Concomitant]
     Indication: NEPHROPATHY
     Dosage: DAILY
     Route: 048
  3. HUMIRA [Suspect]
     Indication: RHEUMATOID ARTHRITIS
     Dates: start: 20030101
  4. ACYCLOVIR [Suspect]
     Dosage: NOT REPORTED

REACTIONS (8)
  - NAUSEA [None]
  - VOMITING [None]
  - ARTHRALGIA [None]
  - HERPES ZOSTER [None]
  - RESTLESS LEGS SYNDROME [None]
  - DIARRHOEA [None]
  - ORAL HERPES [None]
  - WEIGHT DECREASED [None]
